FAERS Safety Report 10979917 (Version 1)
Quarter: 2015Q2

REPORT INFORMATION
  Report Type: Spontaneous
  Country: CH (occurrence: CH)
  Receive Date: 20150402
  Receipt Date: 20150402
  Transmission Date: 20150821
  Serious: Yes (Other)
  Sender: FDA-Public Use
  Company Number: CH-BAXTER-2015BAX017292

PATIENT
  Age: 38 Year
  Sex: Male

DRUGS (1)
  1. ENDOXAN 1 G [Suspect]
     Active Substance: CYCLOPHOSPHAMIDE
     Indication: PRECURSOR B-LYMPHOBLASTIC LYMPHOMA
     Route: 065
     Dates: start: 20130227

REACTIONS (1)
  - Precursor B-lymphoblastic lymphoma recurrent [Unknown]

NARRATIVE: CASE EVENT DATE: 201308
